FAERS Safety Report 10367824 (Version 1)
Quarter: 2014Q3

REPORT INFORMATION
  Report Type: Spontaneous
  Country: RU (occurrence: RU)
  Receive Date: 20140807
  Receipt Date: 20140807
  Transmission Date: 20150326
  Serious: Yes (Other)
  Sender: FDA-Public Use
  Company Number: RU-PFIZER INC-2014214583

PATIENT
  Age: 35 Year
  Sex: Male

DRUGS (3)
  1. LYRICA [Suspect]
     Active Substance: PREGABALIN
     Dosage: 3 G, PER DAY (10 CAPSULES)
     Route: 048
     Dates: start: 201404
  2. LYRICA [Suspect]
     Active Substance: PREGABALIN
     Indication: ALCOHOLISM
     Dosage: 150 MG, 2X/DAY
     Route: 048
     Dates: start: 201305, end: 201311
  3. LYRICA [Suspect]
     Active Substance: PREGABALIN
     Indication: DRUG DEPENDENCE
     Dosage: STARTED FROM 300 MG, 2X/DAY
     Route: 048
     Dates: start: 201312, end: 201404

REACTIONS (8)
  - Off label use [Unknown]
  - Irritability [Unknown]
  - Withdrawal syndrome [Unknown]
  - Neurosis [Unknown]
  - General physical health deterioration [Unknown]
  - Panic attack [Unknown]
  - Mood altered [Unknown]
  - Intentional overdose [Unknown]

NARRATIVE: CASE EVENT DATE: 201305
